FAERS Safety Report 9968637 (Version 1)
Quarter: 2014Q1

REPORT INFORMATION
  Report Type: Report from Study
  Country: US (occurrence: US)
  Receive Date: 20140306
  Receipt Date: 20140306
  Transmission Date: 20141002
  Serious: No
  Sender: FDA-Public Use
  Company Number: US-ABBVIE-13P-163-1147216-00

PATIENT
  Age: 49 Year
  Sex: Female

DRUGS (8)
  1. HUMIRA [Suspect]
     Indication: CROHN^S DISEASE
     Dates: start: 20130816, end: 20130816
  2. HUMIRA [Suspect]
     Dates: start: 20130830, end: 20130830
  3. HUMIRA [Suspect]
  4. HUMIRA [Suspect]
     Dates: start: 20130913
  5. HYDROCODONE/ACETAMINOPHEN [Concomitant]
     Indication: ABDOMINAL PAIN
     Dosage: 10/325MG, EVERY 8 HOURS OR AS NEEDED
  6. CITALOPRAM [Concomitant]
     Indication: DEPRESSION
  7. AMITRIPTYLINE [Concomitant]
     Indication: DEPRESSION
  8. BENTYL [Concomitant]
     Indication: GASTROINTESTINAL PAIN

REACTIONS (8)
  - Mass [Recovered/Resolved]
  - Urticaria [Recovering/Resolving]
  - Mass [Recovered/Resolved]
  - Fungal infection [Recovering/Resolving]
  - Cystitis [Not Recovered/Not Resolved]
  - Injection site pain [Not Recovered/Not Resolved]
  - Urinary tract infection [Recovered/Resolved]
  - Allergy to arthropod sting [Unknown]
